FAERS Safety Report 12210758 (Version 3)
Quarter: 2016Q2

REPORT INFORMATION
  Report Type: Report from Study
  Country: GB (occurrence: GB)
  Receive Date: 20160325
  Receipt Date: 20160614
  Transmission Date: 20160815
  Serious: Yes (Hospitalization)
  Sender: FDA-Public Use
  Company Number: GB-B.I. PHARMACEUTICALS,INC./RIDGEFIELD-2014-BI-40748BI

PATIENT
  Age: 70 Year
  Sex: Female
  Weight: 88.4 kg

DRUGS (21)
  1. GTN [Concomitant]
     Active Substance: NITROGLYCERIN
     Indication: PROPHYLAXIS
     Dosage: 400 MCG
     Route: 060
     Dates: start: 2004
  2. FUROSEMIDE. [Concomitant]
     Active Substance: FUROSEMIDE
     Indication: CHRONIC KIDNEY DISEASE
     Dosage: 160 MG
     Route: 048
     Dates: start: 20071018
  3. ISOSORBIDE MONONITRATE EXTENDED RELEASE [Concomitant]
     Active Substance: ISOSORBIDE MONONITRATE
     Indication: MYOCARDIAL ISCHAEMIA
     Dosage: 1 ANZ
     Route: 048
     Dates: start: 1998
  4. CITALOPRAM [Concomitant]
     Active Substance: CITALOPRAM HYDROBROMIDE
     Indication: DEPRESSION
     Dosage: 20 MG
     Route: 048
     Dates: start: 2008
  5. NICORANDIL [Concomitant]
     Active Substance: NICORANDIL
     Indication: MYOCARDIAL ISCHAEMIA
     Dosage: 10 MG
     Route: 048
     Dates: start: 1999
  6. ATORVASTATIN [Concomitant]
     Active Substance: ATORVASTATIN
     Indication: DYSLIPIDAEMIA
     Dosage: 80 MG
     Route: 048
  7. ALLOPURINOL. [Concomitant]
     Active Substance: ALLOPURINOL
     Dosage: 200 MG
     Route: 048
     Dates: start: 2009
  8. ARANESP [Concomitant]
     Active Substance: DARBEPOETIN ALFA
     Indication: ANAEMIA
     Dosage: 40 MCG
     Route: 058
     Dates: start: 201002
  9. LINAGLIPTIN [Suspect]
     Active Substance: LINAGLIPTIN
     Indication: TYPE 2 DIABETES MELLITUS
     Dosage: 5 MG
     Route: 048
     Dates: start: 20140225, end: 20140828
  10. BUMETANIDE. [Concomitant]
     Active Substance: BUMETANIDE
     Indication: HYPERTENSION
     Dosage: 2 MG
     Route: 048
  11. ALFACALCIDOL [Concomitant]
     Active Substance: ALFACALCIDOL
     Indication: PROPHYLAXIS
     Dosage: 500 NG
     Route: 048
     Dates: start: 20140831
  12. ALLOPURINOL. [Concomitant]
     Active Substance: ALLOPURINOL
     Indication: GOUT
     Dosage: 100 MG
     Route: 048
  13. LEVOTHYROXINE. [Concomitant]
     Active Substance: LEVOTHYROXINE
     Indication: HYPOTHYROIDISM
     Dosage: 25 MCG
     Route: 048
     Dates: start: 20150430
  14. FERINJECT [Concomitant]
     Active Substance: FERRIC CARBOXYMALTOSE
     Indication: ANAEMIA
     Dosage: 1 G
     Route: 030
     Dates: start: 20150930
  15. NOVOMIX [Concomitant]
     Active Substance: INSULIN ASPART
     Indication: TYPE 2 DIABETES MELLITUS
     Dosage: STRENGTH: 30, TOTAL DAILY DOSE: 98 UI AND 78 UI;
     Route: 058
     Dates: start: 2010
  16. EZETIMIBE. [Concomitant]
     Active Substance: EZETIMIBE
     Indication: BLOOD CHOLESTEROL
     Dosage: 10 MG
     Route: 048
     Dates: start: 2008
  17. ERYTHROPOITIN [Concomitant]
     Indication: ANAEMIA
     Dosage: 40 MCG
     Route: 058
     Dates: start: 201002
  18. LANSOPRAZOLE. [Concomitant]
     Active Substance: LANSOPRAZOLE
     Indication: ANTACID THERAPY
     Dosage: 30 MG
     Route: 048
     Dates: start: 2003
  19. ASPIRIN. [Concomitant]
     Active Substance: ASPIRIN
     Indication: CORONARY ARTERY DISEASE
     Dosage: 75 MG
     Route: 048
     Dates: start: 1996
  20. PARACETAMOL [Concomitant]
     Active Substance: ACETAMINOPHEN
     Indication: PAIN PROPHYLAXIS
     Dosage: 4 G
     Route: 048
     Dates: start: 2009
  21. BISOPROLOL [Concomitant]
     Active Substance: BISOPROLOL
     Indication: HYPERTENSION
     Dosage: 5 MG
     Route: 048
     Dates: start: 2009

REACTIONS (3)
  - Blood creatine increased [Recovered/Resolved]
  - Pneumonia klebsiella [Not Recovered/Not Resolved]
  - Submandibular mass [Recovered/Resolved]

NARRATIVE: CASE EVENT DATE: 20140828
